FAERS Safety Report 6096160-X (Version None)
Quarter: 2009Q1

REPORT INFORMATION
  Report Type: 
  Country: None (occurrence: None)
  Receive Date: 20090227
  Receipt Date: 20080918
  Transmission Date: 20090719
  Serious: No
  Sender: FDA-Public Use
  Company Number: A0748138A

PATIENT

DRUGS (2)
  1. LAMOTRIGINE [Suspect]
     Indication: BIPOLAR DISORDER
     Route: 048
     Dates: start: 20080701
  2. LAMOTRIGINE [Concomitant]
     Route: 048
     Dates: end: 20080701

REACTIONS (1)
  - RASH VESICULAR [None]
